FAERS Safety Report 12215562 (Version 5)
Quarter: 2016Q2

REPORT INFORMATION
  Report Type: Report from Study
  Country: US (occurrence: US)
  Receive Date: 20160328
  Receipt Date: 20160517
  Transmission Date: 20160815
  Serious: Yes (Hospitalization, Other)
  Sender: FDA-Public Use
  Company Number: US-GILEAD-2016-0203232

PATIENT
  Age: 67 Year
  Sex: Female

DRUGS (2)
  1. IDELALISIB [Suspect]
     Active Substance: IDELALISIB
     Indication: B-CELL LYMPHOMA
     Dosage: 150 MG, BID
     Route: 048
     Dates: start: 20160225
  2. RITUXIMAB [Concomitant]
     Active Substance: RITUXIMAB

REACTIONS (10)
  - Drug ineffective [Unknown]
  - Confusional state [Unknown]
  - Cheilitis [Unknown]
  - Respiratory distress [Unknown]
  - Noninfective gingivitis [Unknown]
  - Haemoglobin decreased [Recovering/Resolving]
  - Lymphoma [Unknown]
  - Tumour pain [Recovering/Resolving]
  - Neoplasm [Unknown]
  - White blood cell count decreased [Unknown]

NARRATIVE: CASE EVENT DATE: 20160328
